FAERS Safety Report 6515570-7 (Version None)
Quarter: 2009Q4

REPORT INFORMATION
  Report Type: 
  Country: None (occurrence: None)
  Receive Date: 20091223
  Receipt Date: 20091211
  Transmission Date: 20100525
  Serious: Yes (Life-Threatening, Hospitalization, Disabling, Other)
  Sender: FDA-Public Use
  Company Number: GB-BRISTOL-MYERS SQUIBB COMPANY-14711030

PATIENT
  Age: 62 Year
  Sex: Female

DRUGS (2)
  1. MITOTANE [Suspect]
     Indication: ADRENAL CARCINOMA
     Route: 048
     Dates: start: 20090301, end: 20090601
  2. STEROIDS [Concomitant]

REACTIONS (2)
  - CHOLANGITIS SCLEROSING [None]
  - HEPATITIS [None]
